FAERS Safety Report 5095871-2 (Version None)
Quarter: 2006Q3

REPORT INFORMATION
  Report Type: 
  Country: None (occurrence: None)
  Receive Date: 20060905
  Receipt Date: 20060825
  Transmission Date: 20061208
  Serious: Yes (Other)
  Sender: FDA-Public Use
  Company Number: US-JNJFOC-20060806102

PATIENT
  Sex: Female
  Weight: 90.72 kg

DRUGS (6)
  1. FENTANYL TRANSDERMAL SYSTEM [Suspect]
     Indication: BACK PAIN
     Route: 062
     Dates: start: 20051201, end: 20051201
  2. ALBUTEROL [Concomitant]
     Indication: ASTHMA
     Dosage: AS NEEDED
     Route: 055
  3. ZOLOFT [Concomitant]
     Indication: DEPRESSION
     Route: 048
  4. FLEXERIL [Concomitant]
     Indication: PAIN
     Route: 048
  5. ASPIRIN [Concomitant]
     Indication: CARDIAC DISORDER
     Route: 048
  6. DILAUDID [Concomitant]
     Indication: PAIN
     Route: 048

REACTIONS (3)
  - HYPERSENSITIVITY [None]
  - SWOLLEN TONGUE [None]
  - THROAT TIGHTNESS [None]
